FAERS Safety Report 10640771 (Version 1)
Quarter: 2014Q4

REPORT INFORMATION
  Report Type: Spontaneous
  Country: US (occurrence: CA)
  Receive Date: 20141209
  Receipt Date: 20141209
  Transmission Date: 20150529
  Serious: Yes (Hospitalization, Other)
  Sender: FDA-Public Use
  Company Number: CA-TEVA-527168USA

PATIENT
  Sex: Female

DRUGS (2)
  1. COPAXONE [Suspect]
     Active Substance: GLATIRAMER ACETATE
     Indication: PRODUCT USED FOR UNKNOWN INDICATION
     Dosage: DOSE AND FREQUENCY NOT PROVIDED
  2. REBIF [Suspect]
     Active Substance: INTERFERON BETA-1A
     Indication: PRODUCT USED FOR UNKNOWN INDICATION
     Dosage: DOSE AND FREQUENCY NOT PROVIDED

REACTIONS (25)
  - Chest pain [Recovering/Resolving]
  - Nerve injury [Unknown]
  - Activities of daily living impaired [Recovering/Resolving]
  - Pain [Recovering/Resolving]
  - Asthenia [Recovering/Resolving]
  - Visual impairment [Recovering/Resolving]
  - Musculoskeletal pain [Recovering/Resolving]
  - Muscle tightness [Recovering/Resolving]
  - Migraine [Recovering/Resolving]
  - Hypoaesthesia [Recovering/Resolving]
  - Muscle spasms [Recovered/Resolved]
  - Spinal column injury [Recovering/Resolving]
  - Neck injury [Recovering/Resolving]
  - Venous injury [Unknown]
  - Paralysis [Recovering/Resolving]
  - Tendon discomfort [Recovering/Resolving]
  - Back pain [Recovering/Resolving]
  - Disturbance in attention [Recovering/Resolving]
  - Road traffic accident [Recovering/Resolving]
  - Cognitive disorder [Recovered/Resolved]
  - Secondary progressive multiple sclerosis [Recovering/Resolving]
  - Cervical vertebral fracture [Recovering/Resolving]
  - Loss of consciousness [Recovering/Resolving]
  - Fall [Recovering/Resolving]
  - Adverse event [Unknown]

NARRATIVE: CASE EVENT DATE: 201212
